FAERS Safety Report 18721306 (Version 2)
Quarter: 2021Q1

REPORT INFORMATION
  Report Type: Spontaneous
  Country: US (occurrence: US)
  Receive Date: 20210109
  Receipt Date: 20210125
  Transmission Date: 20210419
  Serious: No
  Sender: FDA-Public Use
  Company Number: US-TEVA-2021-US-1866849

PATIENT
  Age: 74 Year

DRUGS (2)
  1. NEFAZODONE [Suspect]
     Active Substance: NEFAZODONE
     Indication: FIBROMYALGIA
     Route: 065
     Dates: start: 1995
  2. NEFAZODONE [Suspect]
     Active Substance: NEFAZODONE
     Indication: SLEEP DISORDER

REACTIONS (4)
  - Product availability issue [Unknown]
  - Pain [Unknown]
  - Insomnia [Unknown]
  - Depression [Unknown]
